FAERS Safety Report 7669488-7 (Version None)
Quarter: 2011Q3

REPORT INFORMATION
  Report Type: 
  Country: None (occurrence: None)
  Receive Date: 20110808
  Receipt Date: 20110803
  Transmission Date: 20111222
  Serious: Yes (Hospitalization, Disabling, Other)
  Sender: FDA-Public Use
  Company Number: US-MERCK-0902USA00146

PATIENT
  Age: 52 Year
  Sex: Female

DRUGS (2)
  1. FOSAMAX [Suspect]
     Indication: OSTEOPOROSIS
     Route: 048
     Dates: start: 20020101
  2. FOSAMAX [Suspect]
     Route: 048

REACTIONS (16)
  - EDENTULOUS [None]
  - GASTRIC DISORDER [None]
  - OSTEORADIONECROSIS [None]
  - JOINT RANGE OF MOTION DECREASED [None]
  - ORAL DISORDER [None]
  - GINGIVITIS [None]
  - IMPAIRED HEALING [None]
  - OSTEONECROSIS [None]
  - GINGIVAL DISORDER [None]
  - EXOSTOSIS [None]
  - BLOOD CHOLESTEROL ABNORMAL [None]
  - DEPRESSION [None]
  - ABSCESS [None]
  - PERIODONTAL DISEASE [None]
  - ARTHROPATHY [None]
  - ANXIETY [None]
